FAERS Safety Report 17047862 (Version 1)
Quarter: 2019Q4

REPORT INFORMATION
  Report Type: Spontaneous
  Country: CN (occurrence: CN)
  Receive Date: 20191119
  Receipt Date: 20191119
  Transmission Date: 20200122
  Serious: Yes (Other)
  Sender: FDA-Public Use
  Company Number: CN-PFIZER INC-2019496349

PATIENT
  Age: 66 Year
  Sex: Male
  Weight: 65 kg

DRUGS (3)
  1. METHYLPREDNISOLONE SODIUM SUCCINATE. [Suspect]
     Active Substance: METHYLPREDNISOLONE SODIUM SUCCINATE
     Indication: PNEUMONIA
     Dosage: 40 MG, 2X/DAY
     Route: 041
     Dates: start: 20191103, end: 20191104
  2. SULPERAZON [Suspect]
     Active Substance: CEFOPERAZONE SODIUM\SULBACTAM SODIUM
     Indication: PNEUMONIA
     Dosage: 3 G, 2X/DAY
     Route: 041
     Dates: start: 20191103, end: 20191104
  3. FLUIMUCIL [Suspect]
     Active Substance: ACETYLCYSTEINE
     Indication: ANTIINFLAMMATORY THERAPY
     Dosage: 0.6 G, 3X/DAY
     Route: 048
     Dates: start: 20191103, end: 20191108

REACTIONS (13)
  - Extrasystoles [Recovering/Resolving]
  - Anaemia [Recovering/Resolving]
  - Atrial fibrillation [Recovering/Resolving]
  - Blood calcium decreased [Recovering/Resolving]
  - Ventricular extrasystoles [Recovering/Resolving]
  - Haemoglobin decreased [Recovering/Resolving]
  - Red blood cell count decreased [Recovering/Resolving]
  - Tachyarrhythmia [Recovering/Resolving]
  - Platelet count decreased [Recovering/Resolving]
  - Heart rate abnormal [Recovering/Resolving]
  - Heart rate increased [Recovering/Resolving]
  - Psychomotor hyperactivity [Recovering/Resolving]
  - Delirium [Recovering/Resolving]

NARRATIVE: CASE EVENT DATE: 20191103
